FAERS Safety Report 6386599-7 (Version None)
Quarter: 2009Q4

REPORT INFORMATION
  Report Type: 
  Country: None (occurrence: None)
  Receive Date: 20091002
  Receipt Date: 20090423
  Transmission Date: 20100525
  Serious: No
  Sender: FDA-Public Use
  Company Number: US-ASTRAZENECA-2009UW10188

PATIENT
  Sex: Female

DRUGS (1)
  1. ARIMIDEX [Suspect]
     Route: 048
     Dates: start: 20090416

REACTIONS (7)
  - BONE PAIN [None]
  - CRYING [None]
  - HEADACHE [None]
  - HOT FLUSH [None]
  - MYALGIA [None]
  - NAUSEA [None]
  - VOMITING [None]
